FAERS Safety Report 6358734-8 (Version None)
Quarter: 2009Q3

REPORT INFORMATION
  Report Type: 
  Country: None (occurrence: None)
  Receive Date: 20090914
  Receipt Date: 20090831
  Transmission Date: 20100115
  Serious: Yes (Death)
  Sender: FDA-Public Use
  Company Number: 2009AL003890

PATIENT
  Age: 64 Year
  Sex: Female

DRUGS (46)
  1. DIGOXIN [Suspect]
     Dosage: 0.25MG, DAILY, PO
     Route: 048
     Dates: start: 20030303
  2. ALPRAZOLAM [Concomitant]
  3. WARFARIN [Concomitant]
  4. PROPAFENONE HCL [Concomitant]
  5. ATROVENT [Concomitant]
  6. HYDROCHLOROTHIAZIDE [Concomitant]
  7. TRIMOX [Concomitant]
  8. ACETAMINOPHEN AND HYDROCODONE BITARTRATE [Concomitant]
  9. PROPO-N/APAP [Concomitant]
  10. TIAZAC [Concomitant]
  11. DOXEPIN HCL [Concomitant]
  12. DILTIAZEM [Concomitant]
  13. IPRATROPIUM [Concomitant]
  14. CYCLOBENZAPRINE [Concomitant]
  15. HYDROCODONE [Concomitant]
  16. NEURONTIN [Concomitant]
  17. ISOSORBIDE [Concomitant]
  18. ARTHROTEC [Concomitant]
  19. COMBIVENT [Concomitant]
  20. FUROSEMIDE [Concomitant]
  21. POTASSIUM CHLORIDE [Concomitant]
  22. ZOCOR [Concomitant]
  23. TIZANIDINE HCL [Concomitant]
  24. CEPHALEXIN [Concomitant]
  25. TEQUIN [Concomitant]
  26. PREDNISONE TAB [Concomitant]
  27. GABAPENTIN [Concomitant]
  28. LEVAQUIN [Concomitant]
  29. METHADOSE [Concomitant]
  30. OXYCONTIN [Concomitant]
  31. OXYCODONE HCL AND ACETAMINOPHEN [Concomitant]
  32. ATENOLOL [Concomitant]
  33. BENICAR [Concomitant]
  34. RYTHMOL [Concomitant]
  35. METOLAZONE [Concomitant]
  36. CHLORTHALIDONE [Concomitant]
  37. HEMATINIC [Concomitant]
  38. NABUMETONE [Concomitant]
  39. SIMVASTATIN [Concomitant]
  40. CHANTIX [Concomitant]
  41. AMOXICILLIN [Concomitant]
  42. FERRETTS [Concomitant]
  43. GLYCOLAX [Concomitant]
  44. METOCLOPRAM [Concomitant]
  45. PROMETHAZINE [Concomitant]
  46. LISINOPRIL [Concomitant]

REACTIONS (2)
  - ECONOMIC PROBLEM [None]
  - INJURY [None]
